FAERS Safety Report 8694348 (Version 3)
Quarter: 2012Q4

REPORT INFORMATION
  Report Type: 
  Country: ES (occurrence: ES)
  Receive Date: 20120731
  Receipt Date: 20120920
  Transmission Date: 20130627
  Serious: Yes (Other)
  Sender: FDA-Public Use
  Company Number: ES-PFIZER INC-2012183489

PATIENT
  Age: 30 Year
  Sex: Female

DRUGS (1)
  1. TRANKIMAZIN [Suspect]
     Indication: EMETOPHOBIA
     Dosage: minimum 4 mg, as needed
     Route: 048
     Dates: start: 2005

REACTIONS (3)
  - Hypoacusis [Not Recovered/Not Resolved]
  - Weight decreased [Not Recovered/Not Resolved]
  - Off label use [Unknown]
